FAERS Safety Report 9027467 (Version 3)
Quarter: 2014Q4

REPORT INFORMATION
  Report Type: Report from Study
  Country: US (occurrence: US)
  Receive Date: 20130124
  Receipt Date: 20141020
  Transmission Date: 20150529
  Serious: Yes (Other)
  Sender: FDA-Public Use
  Company Number: US-BIOGENIDEC-2013BI007305

PATIENT
  Age: 54 Year
  Sex: Female

DRUGS (2)
  1. TYSABRI [Suspect]
     Active Substance: NATALIZUMAB
     Indication: MULTIPLE SCLEROSIS
     Route: 042
     Dates: start: 20140521
  2. TYSABRI [Suspect]
     Active Substance: NATALIZUMAB
     Indication: MULTIPLE SCLEROSIS
     Route: 042
     Dates: start: 20071004, end: 20130723

REACTIONS (12)
  - Mental disorder [Recovered/Resolved]
  - Sinusitis [Recovered/Resolved]
  - Productive cough [Recovered/Resolved]
  - Feeling abnormal [Recovered/Resolved]
  - Body temperature increased [Recovered/Resolved]
  - Dyspnoea [Recovered/Resolved]
  - Crying [Recovered/Resolved]
  - Weight decreased [Recovered/Resolved]
  - Depression [Recovered/Resolved]
  - Burning sensation [Recovered/Resolved]
  - Pulmonary hypertension [Recovered/Resolved]
  - Malaise [Recovered/Resolved]

NARRATIVE: CASE EVENT DATE: 2012
